FAERS Safety Report 9140136 (Version 2)
Quarter: 2013Q1

REPORT INFORMATION
  Report Type: Spontaneous
  Country: DE (occurrence: DE)
  Receive Date: 20130305
  Receipt Date: 20130307
  Transmission Date: 20140127
  Serious: Yes (Hospitalization, Other)
  Sender: FDA-Public Use
  Company Number: DE-TEVA-385663GER

PATIENT
  Age: 5 Decade
  Sex: Male

DRUGS (5)
  1. SUMATRIPTAN [Suspect]
     Indication: MIGRAINE
     Dosage: HIGH DOSES ON DAILY BASIS
     Route: 048
     Dates: start: 2000, end: 2008
  2. SUMATRIPTAN [Suspect]
     Dosage: HIGH DOSES ON DAILY BASIS
     Route: 058
     Dates: start: 2000, end: 2008
  3. FROVATRIPTAN [Suspect]
     Indication: MIGRAINE
     Dosage: FOR USE DURING ACUTE MIGRAINE ATTACKS
     Route: 065
     Dates: start: 2000, end: 2008
  4. FROVATRIPTAN [Suspect]
     Dosage: HIGH DOSES ON DAILY BASIS
     Route: 065
     Dates: start: 2000, end: 2008
  5. ZOLMITRIPTAN [Suspect]
     Indication: MIGRAINE
     Dosage: HIGH DOSES ON DAILY BASIS
     Route: 048
     Dates: start: 2000, end: 2008

REACTIONS (3)
  - Major depression [Recovered/Resolved]
  - Withdrawal syndrome [Recovered/Resolved]
  - Intentional drug misuse [Recovered/Resolved]
